FAERS Safety Report 6376839-2 (Version None)
Quarter: 2009Q3

REPORT INFORMATION
  Report Type: 
  Country: None (occurrence: None)
  Receive Date: 20090921
  Receipt Date: 20090911
  Transmission Date: 20100115
  Serious: Yes (Other)
  Sender: FDA-Public Use
  Company Number: GXKR2009IT10188

PATIENT
  Age: 14 Year
  Sex: Male

DRUGS (1)
  1. CEFUROXIME [Suspect]
     Indication: PHARYNGITIS BACTERIAL
     Dosage: ORAL
     Route: 048

REACTIONS (1)
  - PEMPHIGUS [None]
